FAERS Safety Report 10370729 (Version 1)
Quarter: 2014Q1

REPORT INFORMATION
  Report Type: Spontaneous
  Country: US (occurrence: None)
  Receive Date: 20140306
  Receipt Date: 20140306
  Transmission Date: 20141002
  Serious: Yes (Other)
  Sender: FDA-Public Use
  Company Number: 163-21880-13010070

PATIENT
  Age: 72 Year
  Sex: Male
  Weight: 80.74 kg

DRUGS (12)
  1. REVLIMID (LENALIDOMIDE) (10 MILLIGRAM, CAPSULES) [Suspect]
     Indication: B-CELL LYMPHOMA
     Dosage: 10 MG, 21 IN 28 D, PO
     Route: 048
     Dates: start: 20120629, end: 20121214
  2. TRAVATAN (TRAVOPROST) [Concomitant]
  3. ASPIRIN (ACETYLSALICYLIC ACID) [Concomitant]
  4. LEVOTHROID (LEVOTHYROXINE SODIUM) [Concomitant]
  5. AVODART (DUTASTERIDE) [Concomitant]
  6. GLIMEPIRIDE [Concomitant]
  7. COMBIGAN [Concomitant]
  8. DIVALPROEX (VALPROATE SEMISODIUM) [Concomitant]
  9. LEVETIRACETAM [Concomitant]
  10. MAG OX (MAGNESIUM OXIDE) [Concomitant]
  11. MVI [Concomitant]
  12. TAMSULOSIN [Concomitant]

REACTIONS (1)
  - White blood cell count decreased [None]
